FAERS Safety Report 5021335-8 (Version None)
Quarter: 2006Q2

REPORT INFORMATION
  Report Type: 
  Country: None (occurrence: None)
  Receive Date: 20060608
  Receipt Date: 20050815
  Transmission Date: 20061013
  Serious: No
  Sender: FDA-Public Use
  Company Number: US-BRISTOL-MYERS SQUIBB COMPANY-13078431

PATIENT
  Age: 76 Year
  Sex: Male
  Weight: 73 kg

DRUGS (3)
  1. SINEMET [Suspect]
     Indication: PARKINSON'S DISEASE
     Dosage: DOSAGE: 2 TO 3 DOSES DAILY, THEN REDUCED TO ONE DOSE DAILY
     Route: 048
  2. LEXAPRO [Concomitant]
  3. ALEVE (CAPLET) [Concomitant]

REACTIONS (1)
  - DROOLING [None]
